FAERS Safety Report 21116578 (Version 5)
Quarter: 2022Q4

REPORT INFORMATION
  Report Type: Report from Study
  Country: US (occurrence: US)
  Receive Date: 20220722
  Receipt Date: 20221110
  Transmission Date: 20230113
  Serious: Yes (Hospitalization, Other)
  Sender: FDA-Public Use
  Company Number: US-AMGEN-USASL2022122998

PATIENT
  Age: 66 Year
  Sex: Female

DRUGS (2)
  1. LUMAKRAS [Suspect]
     Active Substance: SOTORASIB
     Indication: Lung neoplasm malignant
     Dosage: 960 MILLIGRAM, QD
     Route: 065
     Dates: start: 202202
  2. LUMAKRAS [Suspect]
     Active Substance: SOTORASIB
     Indication: Non-small cell lung cancer

REACTIONS (14)
  - Neuropathy peripheral [Unknown]
  - Uterine haemorrhage [Unknown]
  - Pneumonia respiratory syncytial viral [Unknown]
  - Bone pain [Unknown]
  - Abdominal pain [Unknown]
  - Vaginal haemorrhage [Not Recovered/Not Resolved]
  - Pain [Unknown]
  - Thinking abnormal [Unknown]
  - Urinary tract infection [Unknown]
  - Joint noise [Unknown]
  - Joint range of motion decreased [Unknown]
  - Weight increased [Unknown]
  - Fatigue [Unknown]
  - Vomiting [Not Recovered/Not Resolved]

NARRATIVE: CASE EVENT DATE: 20220101
